FAERS Safety Report 14669405 (Version 1)
Quarter: 2018Q1

REPORT INFORMATION
  Report Type: Spontaneous
  Country: US (occurrence: US)
  Receive Date: 20180321
  Receipt Date: 20180321
  Transmission Date: 20180509
  Serious: Yes (Hospitalization)
  Sender: FDA-Public Use
  Company Number: None

PATIENT
  Age: 69 Year
  Sex: Female

DRUGS (7)
  1. LOTREL 5-20MG [Concomitant]
  2. MULTI-VITAMIN [Concomitant]
     Active Substance: .ALPHA.-TOCOPHEROL ACETATE, DL-\ASCORBIC ACID\CYANOCOBALAMIN\FLUORIDE ION\FOLIC ACID\NIACIN\PYRIDOXINE\RIBOFLAVIN\THIAMINE\VITAMIN A\VITAMIN D
  3. ENBREL [Suspect]
     Active Substance: ETANERCEPT
  4. CALCIUM 500MG [Concomitant]
  5. FOLIC ACID 1MG GENERIC [Concomitant]
     Active Substance: FOLIC ACID
  6. NASONEX SPRAY 50MCG/AC [Concomitant]
  7. METHOTREXATE 2.5MG [Concomitant]
     Active Substance: METHOTREXATE

REACTIONS (3)
  - Ulcer haemorrhage [None]
  - Gastric disorder [None]
  - Osteoarthritis [None]
